FAERS Safety Report 17870206 (Version 1)
Quarter: 2020Q2

REPORT INFORMATION
  Report Type: Spontaneous
  Country: US (occurrence: US)
  Receive Date: 20200605
  Receipt Date: 20200605
  Transmission Date: 20200714
  Serious: No
  Sender: FDA-Public Use
  Company Number: None

PATIENT
  Age: 22 Year
  Weight: 71.9 kg

DRUGS (2)
  1. SODIUM FERRIC GLUCONATE [Concomitant]
     Active Substance: SODIUM FERRIC GLUCONATE COMPLEX
     Dates: start: 20200605
  2. SODIUM FERRIC GLUCONATE [Suspect]
     Active Substance: SODIUM FERRIC GLUCONATE COMPLEX
     Indication: IRON DEFICIENCY
     Route: 042

REACTIONS (5)
  - Hypoaesthesia [None]
  - Nausea [None]
  - Vomiting [None]
  - Infusion related reaction [None]
  - Gait disturbance [None]

NARRATIVE: CASE EVENT DATE: 20200605
